FAERS Safety Report 5728788-8 (Version None)
Quarter: 2008Q2

REPORT INFORMATION
  Report Type: 
  Country: None (occurrence: None)
  Receive Date: 20080506
  Receipt Date: 20080425
  Transmission Date: 20081010
  Serious: Yes (Hospitalization)
  Sender: FDA-Public Use
  Company Number: US-JNJFOC-20080407197

PATIENT
  Age: 62 Year
  Sex: Male
  Weight: 104.33 kg

DRUGS (6)
  1. ARESTIN [Suspect]
     Route: 004
  2. ARESTIN [Suspect]
     Indication: DRUG USE FOR UNKNOWN INDICATION
     Route: 004
  3. PREDNISONE [Concomitant]
  4. HYPERTENSION MEDICATION [Concomitant]
  5. FOLIC ACID [Concomitant]
  6. LIPITOR [Concomitant]

REACTIONS (2)
  - ASTHENIA [None]
  - DYSPNOEA [None]
